FAERS Safety Report 8819134 (Version 3)
Quarter: 2013Q1

REPORT INFORMATION
  Report Type: Spontaneous
  Country: JP (occurrence: JP)
  Receive Date: 20121001
  Receipt Date: 20130205
  Transmission Date: 20140127
  Serious: Yes (Death, Life-Threatening, Hospitalization, Other)
  Sender: FDA-Public Use
  Company Number: JP-MPIJNJ-2012-06476

PATIENT
  Sex: 0

DRUGS (13)
  1. VELCADE [Suspect]
     Indication: PLASMA CELL MYELOMA
     Dosage: 1.9 MG, UNK
     Route: 042
     Dates: start: 20090310, end: 20120117
  2. VELCADE [Suspect]
     Dosage: UNK
     Route: 042
     Dates: start: 20120724, end: 20130115
  3. DEXAMETHASONE [Suspect]
     Indication: PLASMA CELL MYELOMA
     Dosage: 20 MG, UNK
     Route: 048
     Dates: start: 20120724, end: 20130116
  4. PERIFOSINE [Suspect]
     Indication: PLASMA CELL MYELOMA
     Dosage: UNK
     Dates: end: 20130117
  5. DEXAMETHASON                       /00016001/ [Concomitant]
     Indication: PLASMA CELL MYELOMA
     Dosage: UNK
     Route: 048
  6. ACICLOVIR [Concomitant]
     Indication: PROPHYLAXIS
     Dosage: UNK
     Dates: start: 20120801
  7. MAGLAX [Concomitant]
     Indication: CONSTIPATION
     Dosage: 1500 MG, UNK
     Route: 048
  8. BAKTAR [Concomitant]
     Indication: PROPHYLAXIS
     Dosage: UNK
     Route: 048
     Dates: start: 20120724
  9. LANSOPRAZOLE [Concomitant]
     Indication: PROPHYLAXIS
     Dosage: 15 MG, UNK
     Route: 048
  10. WARFARIN POTASSIUM [Concomitant]
     Indication: DEEP VEIN THROMBOSIS
     Dosage: 1 UNK, UNK
  11. PURSENNID                          /00571901/ [Concomitant]
     Indication: CONSTIPATION
     Dosage: 24 MG, UNK
     Route: 048
  12. MYSLEE [Concomitant]
     Indication: INSOMNIA
     Dosage: 10 MG, UNK
     Route: 048
  13. LOXOPROFEN SODIUM [Concomitant]
     Indication: RESTLESS LEGS SYNDROME
     Dosage: 60 MG, UNK
     Route: 048
     Dates: start: 20120904

REACTIONS (8)
  - Pneumonia influenzal [Fatal]
  - Myocarditis [Fatal]
  - Bronchopulmonary aspergillosis [Recovered/Resolved]
  - Restless legs syndrome [Recovered/Resolved]
  - Sensory disturbance [Not Recovered/Not Resolved]
  - Platelet count decreased [Unknown]
  - Deep vein thrombosis [Unknown]
  - Depression [Unknown]
